FAERS Safety Report 17506326 (Version 1)
Quarter: 2020Q1

REPORT INFORMATION
  Report Type: Spontaneous
  Country: US (occurrence: US)
  Receive Date: 20200305
  Receipt Date: 20200305
  Transmission Date: 20200409
  Serious: No
  Sender: FDA-Public Use
  Company Number: US-ROCHE-2426677

PATIENT

DRUGS (1)
  1. XOLAIR [Suspect]
     Active Substance: OMALIZUMAB
     Indication: PRODUCT USED FOR UNKNOWN INDICATION
     Route: 065
     Dates: start: 201801

REACTIONS (9)
  - Injection site scab [Unknown]
  - Pruritus [Unknown]
  - Injection site bruising [Unknown]
  - Tenderness [Unknown]
  - Throat irritation [Recovered/Resolved]
  - Vision blurred [Unknown]
  - Ocular hyperaemia [Unknown]
  - Fatigue [Unknown]
  - Pyrexia [Unknown]
